FAERS Safety Report 7637040-5 (Version None)
Quarter: 2011Q3

REPORT INFORMATION
  Report Type: 
  Country: None (occurrence: None)
  Receive Date: 20110726
  Receipt Date: 20110719
  Transmission Date: 20111222
  Serious: Yes (Other)
  Sender: FDA-Public Use
  Company Number: US-GENZYME-FLUD-1001182

PATIENT

DRUGS (13)
  1. FLUDARA [Suspect]
     Indication: STEM CELL TRANSPLANT
  2. CYCLOSPORINE [Concomitant]
     Indication: PROPHYLAXIS AGAINST GRAFT VERSUS HOST DISEASE
     Dosage: START ON DAY -1
     Route: 065
  3. FLUCONAZOLE [Concomitant]
     Indication: ANTIFUNGAL PROPHYLAXIS
     Dosage: UNK
     Route: 065
  4. ANTIBIOTICS [Concomitant]
     Indication: PRODUCT USED FOR UNKNOWN INDICATION
     Dosage: UNK
     Route: 065
  5. FLUDARA [Suspect]
     Indication: MYELODYSPLASTIC SYNDROME
     Dosage: 30 MG/M2, QDX6
     Route: 065
  6. THYMOGLOBULIN [Suspect]
     Indication: MYELODYSPLASTIC SYNDROME
     Dosage: 1 MG/KG, QDX4
     Route: 065
  7. BUSULFAN [Suspect]
     Indication: STEM CELL TRANSPLANT
  8. ACYCLOVIR [Concomitant]
     Indication: ANTIVIRAL PROPHYLAXIS
     Dosage: UNK
     Route: 065
  9. ANTIFUNGALS [Concomitant]
     Indication: PRODUCT USED FOR UNKNOWN INDICATION
     Dosage: UNK
     Route: 065
  10. ACYCLOVIR [Concomitant]
  11. THYMOGLOBULIN [Suspect]
     Indication: STEM CELL TRANSPLANT
  12. BUSULFAN [Suspect]
     Indication: MYELODYSPLASTIC SYNDROME
     Dosage: UNK,SINGLE DAILY DOSES X2 WITH TARGETED ABSOLUTE NEUTROPHIL COUNT AT 4000 MCMOL X MIN PER DAY
     Route: 065
  13. CELLCEPT [Concomitant]
     Indication: PROPHYLAXIS AGAINST GRAFT VERSUS HOST DISEASE
     Dosage: FOR FIRST 50 DAYS POST TRANSPLANT
     Route: 065

REACTIONS (1)
  - MYELODYSPLASTIC SYNDROME [None]
